FAERS Safety Report 19242105 (Version 1)
Quarter: 2021Q2

REPORT INFORMATION
  Report Type: Spontaneous
  Country: US (occurrence: US)
  Receive Date: 20210511
  Receipt Date: 20210511
  Transmission Date: 20210717
  Serious: Yes (Other)
  Sender: FDA-Public Use
  Company Number: US-ALVOGEN-2021-ALVOGEN-116927

PATIENT
  Age: 59 Year
  Sex: Female

DRUGS (1)
  1. GRALISE [Suspect]
     Active Substance: GABAPENTIN
     Indication: INTERVERTEBRAL DISC DISORDER
     Dosage: STRENGTH: 600 MG, QD
     Route: 048

REACTIONS (1)
  - Sinusitis [Unknown]
